FAERS Safety Report 19037925 (Version 1)
Quarter: 2021Q1

REPORT INFORMATION
  Report Type: Report from Study
  Country: KR (occurrence: KR)
  Receive Date: 20210322
  Receipt Date: 20210322
  Transmission Date: 20210420
  Serious: Yes (Hospitalization)
  Sender: FDA-Public Use
  Company Number: KR-EISAI MEDICAL RESEARCH-EC-2021-089860

PATIENT
  Age: 57 Year
  Sex: Male
  Weight: 72.3 kg

DRUGS (9)
  1. MEGACE F [Concomitant]
     Indication: DECREASED APPETITE
     Route: 048
     Dates: start: 20200916
  2. VENITOL [Concomitant]
     Indication: ANAL FISSURE
     Dosage: 10 TABS
     Route: 048
     Dates: start: 20201214
  3. SEVIKAR [Concomitant]
     Active Substance: AMLODIPINE BESYLATE\OLMESARTAN MEDOXOMIL
     Indication: HYPERTENSION
     Dosage: 1 TAB
     Route: 048
     Dates: start: 20200805, end: 20210306
  4. SMECTA [Concomitant]
     Active Substance: MONTMORILLONITE
     Indication: IRRITABLE BOWEL SYNDROME
     Route: 048
     Dates: start: 20200916
  5. LENVIMA [Suspect]
     Active Substance: LENVATINIB
     Indication: HEPATOCELLULAR CARCINOMA
     Route: 048
     Dates: start: 20200722
  6. VIREAD [Concomitant]
     Active Substance: TENOFOVIR DISOPROXIL FUMARATE
     Indication: CHRONIC HEPATITIS B
     Route: 048
     Dates: start: 20180720
  7. POLYBUTINE [Concomitant]
     Indication: IRRITABLE BOWEL SYNDROME
     Route: 048
     Dates: start: 20200916
  8. BETMIGA PR [Concomitant]
     Indication: BENIGN PROSTATIC HYPERPLASIA
     Route: 048
     Dates: start: 20201214
  9. FEROBA?YOU [Concomitant]
     Indication: PROPHYLAXIS
     Dosage: 2 TABS
     Route: 048
     Dates: start: 20201214

REACTIONS (1)
  - Muscular weakness [Recovered/Resolved]

NARRATIVE: CASE EVENT DATE: 20210305
